FAERS Safety Report 8740660 (Version 6)
Quarter: 2013Q4

REPORT INFORMATION
  Report Type: Spontaneous
  Country: US (occurrence: US)
  Receive Date: 20120823
  Receipt Date: 20131219
  Transmission Date: 20140711
  Serious: Yes (Hospitalization, Other)
  Sender: FDA-Public Use
  Company Number: US-ASTRAZENECA-2012SE57590

PATIENT
  Age: 50 Year
  Sex: Female
  Weight: 68.9 kg

DRUGS (19)
  1. SEROQUEL XR [Suspect]
     Indication: BIPOLAR DISORDER
     Route: 048
     Dates: start: 2010, end: 20130729
  2. SEROQUEL XR [Suspect]
     Indication: INSOMNIA
     Route: 048
     Dates: start: 2010, end: 20130729
  3. SEROQUEL XR [Suspect]
     Indication: BIPOLAR DISORDER
     Route: 048
     Dates: end: 201307
  4. SEROQUEL XR [Suspect]
     Indication: INSOMNIA
     Route: 048
     Dates: end: 201307
  5. SYMBICORT PMDI [Suspect]
     Indication: CHRONIC OBSTRUCTIVE PULMONARY DISEASE
     Dosage: 160/4.5MCG, 2 PUFFS BID
     Route: 055
     Dates: start: 2012
  6. TRAMADOL [Suspect]
     Indication: PAIN
     Route: 048
     Dates: start: 2009, end: 20130704
  7. TRAMADOL [Suspect]
     Indication: PAIN
     Dosage: 20 MG
     Route: 048
  8. ATIVAN [Concomitant]
     Indication: POST-TRAUMATIC STRESS DISORDER
     Route: 048
  9. FLEXORIL [Concomitant]
     Indication: PAIN
     Route: 048
     Dates: start: 200406
  10. FLEXORIL [Concomitant]
     Indication: INTERVERTEBRAL DISC DISORDER
     Route: 048
     Dates: start: 200406
  11. DARVOCET [Concomitant]
     Indication: PAIN
  12. SIMVASTATIN [Concomitant]
     Indication: BLOOD CHOLESTEROL INCREASED
     Dates: start: 201308
  13. BISOPROLOL [Concomitant]
     Indication: TACHYCARDIA
     Dosage: GENERIC 5 MG 6.25 MG DAILY
     Dates: start: 2002
  14. ZIAC [Concomitant]
     Indication: TACHYCARDIA
     Dosage: 5MG 6.25MG DAILY
     Dates: start: 2002
  15. VITAMIN B3 [Concomitant]
     Dosage: 50000 UNITS
  16. ASPIRIN [Concomitant]
     Dosage: DAILY
  17. LORAZEPAM [Concomitant]
     Indication: PANIC ATTACK
  18. LORAZEPAM [Concomitant]
     Indication: ANXIETY
  19. CHOLECALCIFEROL [Concomitant]
     Indication: VITAMIN D DEFICIENCY
     Dosage: 5000 UNITS
     Dates: start: 201305

REACTIONS (18)
  - Snake bite [Recovered/Resolved]
  - Respiratory disorder [Unknown]
  - Paraesthesia [Recovered/Resolved]
  - Panic attack [Not Recovered/Not Resolved]
  - Non-cardiac chest pain [Unknown]
  - Nasopharyngitis [Unknown]
  - Post-traumatic stress disorder [Not Recovered/Not Resolved]
  - Insomnia [Recovered/Resolved]
  - Anxiety [Recovered/Resolved]
  - Feeling abnormal [Unknown]
  - Vitamin D deficiency [Unknown]
  - Frustration [Unknown]
  - Restless legs syndrome [Recovered/Resolved]
  - Blood cholesterol increased [Unknown]
  - Tremor [Not Recovered/Not Resolved]
  - Chronic obstructive pulmonary disease [Unknown]
  - Drug dose omission [Not Recovered/Not Resolved]
  - Off label use [Unknown]
